FAERS Safety Report 7580838-2 (Version None)
Quarter: 2011Q2

REPORT INFORMATION
  Report Type: 
  Country: None (occurrence: None)
  Receive Date: 20110629
  Receipt Date: 20110627
  Transmission Date: 20111010
  Serious: Yes (Other)
  Sender: FDA-Public Use
  Company Number: CN-PFIZER INC-2011140634

PATIENT
  Age: 37 Year
  Sex: Female

DRUGS (1)
  1. DETROL [Suspect]
     Indication: HYPERTONIC BLADDER
     Dosage: UNK
     Route: 048

REACTIONS (4)
  - VOMITING [None]
  - DIARRHOEA [None]
  - HEADACHE [None]
  - LISTLESS [None]
